FAERS Safety Report 6113891-3 (Version None)
Quarter: 2009Q1

REPORT INFORMATION
  Report Type: 
  Country: None (occurrence: None)
  Receive Date: 20090312
  Receipt Date: 20080728
  Transmission Date: 20090719
  Serious: No
  Sender: FDA-Public Use
  Company Number: US-ABBOTT-08P-163-0466686-00

PATIENT
  Sex: Female

DRUGS (4)
  1. LUPRON DEPOT [Suspect]
     Indication: MENSTRUAL CYCLE MANAGEMENT
     Route: 030
     Dates: start: 20080401
  2. OXCARBAZEPINE [Concomitant]
     Indication: CONVULSION
     Dates: start: 19980101
  3. ACETALZOLAMIDE [Concomitant]
     Indication: CONVULSION
  4. PHENOBARBITAL TAB [Concomitant]
     Indication: CONVULSION

REACTIONS (1)
  - DRUG LEVEL DECREASED [None]
